FAERS Safety Report 4446532-1 (Version None)
Quarter: 2004Q3

REPORT INFORMATION
  Report Type: 
  Country: None (occurrence: None)
  Receive Date: 20040902
  Receipt Date: 20040812
  Transmission Date: 20050211
  Serious: Yes (Hospitalization)
  Sender: FDA-Public Use
  Company Number: EWC040840120

PATIENT
  Age: 46 Year
  Sex: Male

DRUGS (8)
  1. ZYPREXA [Suspect]
     Indication: ACUTE PSYCHOSIS
     Dosage: 10 MG/2 DAY
     Dates: start: 20040623, end: 20040702
  2. ZYPREXA [Suspect]
     Indication: DELIRIUM
     Dosage: 10 MG/2 DAY
     Dates: start: 20040623, end: 20040702
  3. ZYPREXA [Suspect]
  4. ZYPREXA [Suspect]
     Indication: ACUTE PSYCHOSIS
     Dosage: 10 MG/2 DAY
     Dates: start: 20040703, end: 20040723
  5. ZYPREXA [Suspect]
     Indication: DELIRIUM
     Dosage: 10 MG/2 DAY
     Dates: start: 20040703, end: 20040723
  6. GENERAL ANAESTHESIA [Concomitant]
  7. LORAZEPAM [Concomitant]
  8. LORAZEPAM [Concomitant]

REACTIONS (8)
  - BLOOD AMYLASE INCREASED [None]
  - CHOLELITHIASIS [None]
  - DIALYSIS [None]
  - HAEMATOCRIT DECREASED [None]
  - HEPATITIS A POSITIVE [None]
  - LEUKOPENIA [None]
  - RENAL FAILURE ACUTE [None]
  - RHABDOMYOLYSIS [None]
